FAERS Safety Report 19645287 (Version 2)
Quarter: 2021Q3

REPORT INFORMATION
  Report Type: Other
  Country: IT (occurrence: IT)
  Receive Date: 20210802
  Receipt Date: 20210825
  Transmission Date: 20211014
  Serious: Yes (Other)
  Sender: FDA-Public Use
  Company Number: IT-ROCHE-2867439

PATIENT
  Weight: 100 kg

DRUGS (7)
  1. PRALSETINIB. [Suspect]
     Active Substance: PRALSETINIB
     Indication: NON-SMALL CELL LUNG CANCER
     Dosage: ON 31/MAY/2021 PATIENT RECEIVED THE MOST RECENT DOSE PRIOR TO AE ?ON 05/JUL/2021, TREATMENT WAS REST
     Route: 048
     Dates: start: 20210202
  2. LASIX [Concomitant]
     Active Substance: FUROSEMIDE
     Route: 048
  3. FOLIC ACID. [Concomitant]
     Active Substance: FOLIC ACID
     Route: 048
  4. ARIXTRA [Concomitant]
     Active Substance: FONDAPARINUX SODIUM
     Route: 058
  5. DELTACORTENE [Concomitant]
     Active Substance: PREDNISONE
     Route: 048
  6. FENTANYL. [Concomitant]
     Active Substance: FENTANYL
     Dosage: 37 MCG
  7. XANAX [Concomitant]
     Active Substance: ALPRAZOLAM
     Route: 048

REACTIONS (3)
  - Herpes zoster reactivation [Recovered/Resolved]
  - Erythema multiforme [Recovering/Resolving]
  - Anaemia [Recovered/Resolved]

NARRATIVE: CASE EVENT DATE: 20210330
